FAERS Safety Report 13857371 (Version 1)
Quarter: 2017Q3

REPORT INFORMATION
  Report Type: Spontaneous
  Country: CA (occurrence: CA)
  Receive Date: 20170810
  Receipt Date: 20170810
  Transmission Date: 20171127
  Serious: Yes (Other)
  Sender: FDA-Public Use
  Company Number: CA-TEVA-795556ACC

PATIENT
  Age: 43 Year
  Sex: Female

DRUGS (11)
  1. VENTOLIN [Concomitant]
     Active Substance: ALBUTEROL SULFATE
  2. ABILIFY [Concomitant]
     Active Substance: ARIPIPRAZOLE
  3. CENTRUM [Concomitant]
     Active Substance: VITAMINS
  4. ESCITALOPRAM [Concomitant]
     Active Substance: ESCITALOPRAM OXALATE
  5. FIBRISTAL [Concomitant]
     Active Substance: ULIPRISTAL
  6. VITAMIN D [Concomitant]
     Active Substance: CHOLECALCIFEROL
  7. XARELTO [Concomitant]
     Active Substance: RIVAROXABAN
  8. RABEPRAZOLE [Concomitant]
     Active Substance: RABEPRAZOLE
  9. CEPHALEXIN. [Suspect]
     Active Substance: CEPHALEXIN
     Indication: FURUNCLE
     Dosage: 2000 MILLIGRAM DAILY;
     Route: 048
  10. SENOKOT [Concomitant]
     Active Substance: SENNOSIDES
  11. SEROQUEL [Concomitant]
     Active Substance: QUETIAPINE FUMARATE

REACTIONS (4)
  - Suicidal ideation [Unknown]
  - Depression [Unknown]
  - Stress [Unknown]
  - Mood altered [Unknown]
